FAERS Safety Report 9348398 (Version 5)
Quarter: 2013Q3

REPORT INFORMATION
  Report Type: Report from Study
  Country: ES (occurrence: ES)
  Receive Date: 20130614
  Receipt Date: 20130916
  Transmission Date: 20140515
  Serious: Yes (Hospitalization)
  Sender: FDA-Public Use
  Company Number: ES-BRISTOL-MYERS SQUIBB COMPANY-18988030

PATIENT
  Age: 60 Year
  Sex: Male

DRUGS (9)
  1. IPILIMUMAB [Suspect]
     Indication: METASTATIC MALIGNANT MELANOMA
     Dosage: INTERRUPTED ON 15MAY12.
     Route: 042
     Dates: start: 20120403
  2. DAFLON [Concomitant]
     Dates: start: 20130422
  3. TRAMADOL [Concomitant]
     Dosage: CAPS
     Route: 048
  4. DEXAMETHASONE [Concomitant]
     Route: 048
  5. FLUCONAZOLE [Concomitant]
     Dosage: CAPS
     Route: 048
  6. CIPROFLOXACIN [Concomitant]
     Dosage: CAPS
     Route: 048
  7. OMEPRAZOLE [Concomitant]
  8. PARACETAMOL [Concomitant]
     Route: 048
  9. IBUPROFEN [Concomitant]
     Route: 048

REACTIONS (2)
  - Proctalgia [Recovered/Resolved]
  - Colitis [Recovered/Resolved]
